FAERS Safety Report 4817539-7 (Version None)
Quarter: 2005Q4

REPORT INFORMATION
  Report Type: 
  Country: None (occurrence: None)
  Receive Date: 20051101
  Receipt Date: 20051026
  Transmission Date: 20060501
  Serious: Yes (Hospitalization)
  Sender: FDA-Public Use
  Company Number: US-MERCK-0510USA09458

PATIENT
  Age: 33 Year
  Sex: Female
  Weight: 59 kg

DRUGS (11)
  1. VIOXX [Suspect]
     Indication: RHEUMATOID ARTHRITIS
     Route: 048
     Dates: start: 20001109, end: 20041120
  2. SULFASALAZINE [Concomitant]
     Route: 065
  3. ARTHROTEC [Concomitant]
     Route: 065
  4. BRUFEN [Concomitant]
     Route: 065
  5. LOSEC (OMEPRAZOLE) [Concomitant]
     Route: 065
  6. LOSEC (OMEPRAZOLE) [Concomitant]
     Route: 065
  7. DIANE 35 [Concomitant]
     Route: 065
  8. [THERAPY UNSPECIFIED] [Concomitant]
     Route: 065
  9. ANDROCUR [Concomitant]
     Route: 065
  10. TRAMADOL HYDROCHLORIDE [Concomitant]
     Route: 065
  11. ARAVA [Concomitant]
     Route: 065

REACTIONS (1)
  - CEREBROVASCULAR ACCIDENT [None]
